FAERS Safety Report 19058157 (Version 3)
Quarter: 2021Q2

REPORT INFORMATION
  Report Type: Report from Study
  Country: HU (occurrence: HU)
  Receive Date: 20210325
  Receipt Date: 20210408
  Transmission Date: 20210717
  Serious: Yes (Hospitalization)
  Sender: FDA-Public Use
  Company Number: HU-ROCHE-2794070

PATIENT
  Age: 47 Year
  Sex: Female
  Weight: 75 kg

DRUGS (33)
  1. QUAMATEL [Concomitant]
     Active Substance: FAMOTIDINE
     Dosage: PROPHYLAXIS OF CHEMOTHERAPY
     Dates: start: 20210309, end: 20210311
  2. DIONIN [Concomitant]
     Indication: BACK PAIN
     Dates: start: 20201228
  3. EMETRON [Concomitant]
     Dosage: PROPHYLAXIS OF VOMITING
     Dates: start: 20210217
  4. EMETRON [Concomitant]
     Dosage: PROPHYLAXIS OF NAUSEA
     Dates: start: 20210312, end: 20210314
  5. TRAMADOL. [Concomitant]
     Active Substance: TRAMADOL
     Indication: CHEST PAIN
     Dates: start: 20210217
  6. ACCOFIL [Concomitant]
     Active Substance: FILGRASTIM
     Dates: start: 20210321, end: 20210322
  7. TIENAM [Concomitant]
     Active Substance: CILASTATIN SODIUM\IMIPENEM
     Dates: start: 20210319, end: 20210323
  8. CATAFLAM [Concomitant]
     Active Substance: DICLOFENAC POTASSIUM
     Indication: BACK PAIN
     Dates: start: 20201228
  9. FUROSEMID [Concomitant]
     Active Substance: FUROSEMIDE
     Dosage: PROPHYALXIS OF EDEMA
     Dates: start: 20210217
  10. KALIUM?R [Concomitant]
     Dosage: PROPHYLAXIS OF HYPOKALEMIA
     Dates: start: 20210217
  11. ACCOFIL [Concomitant]
     Active Substance: FILGRASTIM
     Dates: start: 20210319, end: 20210320
  12. MEDROL [Concomitant]
     Active Substance: METHYLPREDNISOLONE
     Indication: NEUTROPENIA
     Dates: start: 20210224
  13. QUAMATEL [Concomitant]
     Active Substance: FAMOTIDINE
     Dosage: PREMEDICATION FOR CHEMOTHERAPY
     Dates: start: 20210215, end: 20210217
  14. NO?SPA [Concomitant]
     Active Substance: DROTAVERINE HYDROCHLORIDE
     Indication: ABDOMINAL PAIN
     Dates: start: 20201228
  15. EMETRON [Concomitant]
     Dosage: PROPHYLAXIS OF CHEMOTHERAPY
     Dates: start: 20210309, end: 20210311
  16. EMETRON [Concomitant]
     Dosage: PREMEDICATION FOR CHEMOTHERAPY
     Dates: start: 20210215, end: 20210217
  17. ACCOFIL [Concomitant]
     Active Substance: FILGRASTIM
     Indication: NEUTROPENIA
     Dosage: PREVENTION OF NEUTROPENIA
     Dates: start: 20210218, end: 20210222
  18. BLINDED MTIG 7192A [Suspect]
     Active Substance: TIRAGOLUMAB
     Indication: SMALL CELL LUNG CANCER EXTENSIVE STAGE
     Dosage: DATE OF MOST RECENT DOSE PRIOR TO ADVERSE EVENT AND SERIOUS ADVERSE EVENT: 09/MAR/2021
     Route: 042
     Dates: start: 20210215
  19. CLEXANE [Concomitant]
     Active Substance: ENOXAPARIN SODIUM
     Indication: THROMBOSIS PROPHYLAXIS
     Dates: start: 20201228, end: 20210318
  20. ACCOFIL [Concomitant]
     Active Substance: FILGRASTIM
     Dosage: PROPHYLAXIS OF NEUTROPENIA
     Dates: start: 20210312, end: 20210316
  21. SOLU?MEDROL [Concomitant]
     Active Substance: METHYLPREDNISOLONE SODIUM SUCCINATE
     Dosage: PREMEDICATION FOR CHEMOTHERAPY
     Route: 042
     Dates: start: 20210215, end: 20210217
  22. DHC [Concomitant]
     Active Substance: DIHYDROCODEINE BITARTRATE
     Dates: start: 20210321, end: 20210401
  23. ETOPOSIDE. [Suspect]
     Active Substance: ETOPOSIDE
     Indication: SMALL CELL LUNG CANCER EXTENSIVE STAGE
     Dosage: DATE OF MOST RECENT DOSE (184 MG) PRIOR TO ADVERSE EVENT : 09/MAR/2021 AND SERIOUS ADVERSE EVENT: 11
     Route: 042
     Dates: start: 20210215
  24. SINECOD [Concomitant]
     Active Substance: BUTAMIRATE CITRATE
     Dates: start: 20201228, end: 20210320
  25. SOLU?MEDROL [Concomitant]
     Active Substance: METHYLPREDNISOLONE SODIUM SUCCINATE
     Dosage: PROPHYLAXIS OF CHEMOTHERAPY
     Route: 042
     Dates: start: 20210309, end: 20210311
  26. ATEZOLIZUMAB. [Suspect]
     Active Substance: ATEZOLIZUMAB
     Indication: SMALL CELL LUNG CANCER EXTENSIVE STAGE
     Dosage: DATE OF MOST RECENT DOSE (1200 MG) PRIOR TO ADVERSE EVENT AND SERIOUS ADVERSE EVENT 09/MAR/2021
     Route: 041
     Dates: start: 20210215
  27. CARBOPLATIN. [Suspect]
     Active Substance: CARBOPLATIN
     Indication: SMALL CELL LUNG CANCER EXTENSIVE STAGE
     Dosage: DATE OF MOST RECENT DOSE (610 MG) PRIOR TO ADVERSE EVENT AND SERIOUS ADVERSE EVENT: 09/MAR/2021
     Route: 042
     Dates: start: 20210215
  28. TRAMADOL. [Concomitant]
     Active Substance: TRAMADOL
     Indication: ABDOMINAL PAIN
  29. CLEXANE [Concomitant]
     Active Substance: ENOXAPARIN SODIUM
     Dates: start: 20210321
  30. QUAMATEL [Concomitant]
     Active Substance: FAMOTIDINE
     Indication: PROPHYLAXIS AGAINST GASTROINTESTINAL ULCER
     Dates: start: 20201228
  31. NOACID (HUNGARY) [Concomitant]
     Dosage: PROPHYLAXIS OF GASTRIC ULCER
     Dates: start: 20201228, end: 20210318
  32. ACCOFIL [Concomitant]
     Active Substance: FILGRASTIM
     Indication: LEUKOPENIA
     Dates: start: 20210224, end: 20210225
  33. MEDROL [Concomitant]
     Active Substance: METHYLPREDNISOLONE
     Indication: RASH

REACTIONS (1)
  - COVID-19 [Recovering/Resolving]

NARRATIVE: CASE EVENT DATE: 20210318
